FAERS Safety Report 5140583-X (Version None)
Quarter: 2006Q4

REPORT INFORMATION
  Report Type: 
  Country: None (occurrence: None)
  Receive Date: 20061025
  Receipt Date: 20061017
  Transmission Date: 20070319
  Serious: Yes (Other)
  Sender: FDA-Public Use
  Company Number: 2006126998

PATIENT
  Age: 40 Year
  Sex: Female

DRUGS (1)
  1. LYRICA [Suspect]
     Indication: SCIATICA
     Dosage: 150 MG (75 MG, 2 IN 1 D)
     Dates: start: 20061001

REACTIONS (1)
  - OCULAR HYPERTENSION [None]
